FAERS Safety Report 7959234-1 (Version None)
Quarter: 2011Q4

REPORT INFORMATION
  Report Type: 
  Country: None (occurrence: None)
  Receive Date: 20111206
  Receipt Date: 20111202
  Transmission Date: 20120403
  Serious: Yes (Other)
  Sender: FDA-Public Use
  Company Number: US-PFIZER INC-2011295031

PATIENT
  Sex: Female
  Weight: 64.4 kg

DRUGS (3)
  1. XANAX [Concomitant]
     Indication: ANXIETY
     Dosage: UNK
  2. PREMARIN [Suspect]
     Indication: OESTROGEN THERAPY
     Dosage: 0.3 MG, 1X/DAY
     Route: 048
     Dates: start: 19910101
  3. ACETYLSALICYLIC ACID [Concomitant]
     Dosage: UNK

REACTIONS (1)
  - TYPE 2 DIABETES MELLITUS [None]
